FAERS Safety Report 24938492 (Version 1)
Quarter: 2025Q1

REPORT INFORMATION
  Report Type: Spontaneous
  Country: US (occurrence: US)
  Receive Date: 20250206
  Receipt Date: 20250206
  Transmission Date: 20250409
  Serious: No
  Sender: SANOFI AVENTIS
  Company Number: US-SA-2025SA035856

PATIENT
  Age: 67 Year
  Sex: Female
  Weight: 71.82 kg

DRUGS (1)
  1. KEVZARA [Suspect]
     Active Substance: SARILUMAB
     Indication: Polymyalgia rheumatica
     Dosage: 200 MG, QOW
     Route: 058
     Dates: start: 20250121

REACTIONS (2)
  - Nasopharyngitis [Unknown]
  - Product preparation error [Unknown]

NARRATIVE: CASE EVENT DATE: 20250121
